APPROVED DRUG PRODUCT: CAPITROL
Active Ingredient: CHLOROXINE
Strength: 2%
Dosage Form/Route: SHAMPOO;TOPICAL
Application: N017594 | Product #001
Applicant: WESTWOOD SQUIBB PHARMACEUTICALS INC
Approved: Approved Prior to Jan 1, 1982 | RLD: No | RS: No | Type: DISCN